FAERS Safety Report 11144991 (Version 33)
Quarter: 2018Q1

REPORT INFORMATION
  Report Type: Report from Study
  Country: CA (occurrence: CA)
  Receive Date: 20150528
  Receipt Date: 20180119
  Transmission Date: 20180508
  Serious: Yes (Other)
  Sender: FDA-Public Use
  Company Number: CA-SA-2015SA049409

PATIENT
  Age: 48 Year
  Sex: Male
  Weight: 63.5 kg

DRUGS (15)
  1. METHYLPREDNISOLONE. [Suspect]
     Active Substance: METHYLPREDNISOLONE
     Indication: ANTIINFLAMMATORY THERAPY
     Route: 042
     Dates: start: 20150413
  2. BACLOFEN. [Concomitant]
     Active Substance: BACLOFEN
     Route: 065
  3. BENADRYL [Concomitant]
     Active Substance: DIPHENHYDRAMINE HYDROCHLORIDE
     Indication: PREMEDICATION
     Dosage: FREQUENCY: Q4-6 HR, PRN?FOR 5 DAYS
     Route: 042
     Dates: start: 20150413
  4. TROSEC [Concomitant]
     Route: 065
  5. ZOPICLONE [Concomitant]
     Active Substance: ZOPICLONE
     Route: 065
  6. LEMTRADA [Suspect]
     Active Substance: ALEMTUZUMAB
     Indication: MULTIPLE SCLEROSIS
     Route: 041
     Dates: start: 20150413
  7. GRAVOL [Concomitant]
     Active Substance: DIMENHYDRINATE
     Indication: PREMEDICATION
     Dosage: FREQUENCY: Q4-6 HR, PRN?FOR 5 DAYS
     Route: 048
     Dates: start: 20150413
  8. RANITIDINE. [Concomitant]
     Active Substance: RANITIDINE
     Indication: PREMEDICATION
     Route: 048
     Dates: start: 20150412
  9. SENNOSIDES. [Concomitant]
     Active Substance: SENNOSIDES
     Route: 065
  10. CLONAZEPAM. [Concomitant]
     Active Substance: CLONAZEPAM
     Route: 065
  11. D-TABS [Concomitant]
     Active Substance: CHOLECALCIFEROL
     Route: 065
  12. ACYCLOVIR. [Suspect]
     Active Substance: ACYCLOVIR
     Indication: ANTIVIRAL TREATMENT
     Route: 048
     Dates: start: 20150413
  13. AMANTADINE. [Concomitant]
     Active Substance: AMANTADINE HYDROCHLORIDE
     Route: 065
  14. RAPAFLO [Concomitant]
     Active Substance: SILODOSIN
     Route: 065
  15. DOCUSATE SODIUM. [Concomitant]
     Active Substance: DOCUSATE SODIUM
     Route: 065

REACTIONS (34)
  - Eosinophil percentage increased [Not Recovered/Not Resolved]
  - Urine abnormality [Recovered/Resolved]
  - Blood urine present [Recovered/Resolved]
  - Streptococcus test positive [Recovered/Resolved]
  - Gait disturbance [Recovered/Resolved]
  - Urine leukocyte esterase positive [Recovered/Resolved]
  - Blood thyroid stimulating hormone decreased [Recovered/Resolved]
  - Insomnia [Not Recovered/Not Resolved]
  - Lung disorder [Recovered/Resolved]
  - Urine output decreased [Recovered/Resolved]
  - Band neutrophil percentage increased [Not Recovered/Not Resolved]
  - Red blood cells urine positive [Recovered/Resolved]
  - Eosinophil count increased [Recovered/Resolved]
  - Protein urine present [Recovered/Resolved]
  - Neutrophil percentage decreased [Recovered/Resolved]
  - Bacterial test [Recovered/Resolved]
  - Heart rate irregular [Recovered/Resolved]
  - White blood cells urine positive [Not Recovered/Not Resolved]
  - Leukopenia [Recovered/Resolved]
  - Decreased appetite [Recovered/Resolved]
  - Feeling of body temperature change [Recovered/Resolved]
  - Haemoglobin decreased [Recovered/Resolved]
  - Haematocrit decreased [Not Recovered/Not Resolved]
  - Monocyte percentage increased [Recovered/Resolved]
  - Lymphopenia [Recovered/Resolved]
  - Erythema [Recovered/Resolved]
  - Lymphocyte percentage decreased [Recovered/Resolved]
  - Neutrophil count decreased [Recovered/Resolved]
  - Dyspnoea [Recovered/Resolved]
  - Alanine aminotransferase increased [Recovered/Resolved]
  - Balance disorder [Recovered/Resolved]
  - Neutrophil percentage increased [Recovered/Resolved]
  - Red cell distribution width increased [Recovered/Resolved]
  - Band neutrophil count increased [Recovered/Resolved]

NARRATIVE: CASE EVENT DATE: 201504
